FAERS Safety Report 6015240-8 (Version None)
Quarter: 2008Q4

REPORT INFORMATION
  Report Type: 
  Country: None (occurrence: None)
  Receive Date: 20081219
  Receipt Date: 20081219
  Transmission Date: 20090506
  Serious: No
  Sender: FDA-Public Use
  Company Number: None

PATIENT
  Age: 44 Year
  Sex: Male
  Weight: 103 kg

DRUGS (2)
  1. LEVAQUIN [Suspect]
     Indication: PERITONITIS
     Dosage: 750MG DAILY IV
     Route: 042
     Dates: start: 20081210, end: 20081214
  2. AVELOX [Suspect]
     Indication: SEPSIS
     Dosage: 400MG  DAILY IV
     Route: 042
     Dates: start: 20081201, end: 20081209

REACTIONS (3)
  - BLOOD CREATINE PHOSPHOKINASE INCREASED [None]
  - MYOSITIS [None]
  - RHABDOMYOLYSIS [None]
